FAERS Safety Report 5590857-3 (Version None)
Quarter: 2008Q1

REPORT INFORMATION
  Report Type: 
  Country: None (occurrence: None)
  Receive Date: 20080110
  Receipt Date: 20071226
  Transmission Date: 20080703
  Serious: Yes (Hospitalization)
  Sender: FDA-Public Use
  Company Number: 100#08#2008-00080

PATIENT
  Age: 61 Year
  Sex: Female

DRUGS (4)
  1. GLYBURIDE [Suspect]
     Indication: DIABETES MELLITUS
     Dosage: 5 MG TWICE DAILY
     Route: 048
  2. METFORMIN HCL [Suspect]
     Indication: DIABETES MELLITUS
     Dosage: 850 MGT THRICE DAILY
     Route: 048
  3. LOVASTATIN [Concomitant]
  4. LEVOTHYROXINE SODIUM [Concomitant]

REACTIONS (12)
  - ACUTE PRERENAL FAILURE [None]
  - BLOOD GLUCOSE INCREASED [None]
  - CONTINUOUS HAEMODIAFILTRATION [None]
  - DEHYDRATION [None]
  - FOOD INTOLERANCE [None]
  - HAEMODIALYSIS [None]
  - HYPOTENSION [None]
  - KUSSMAUL RESPIRATION [None]
  - LACTIC ACIDOSIS [None]
  - LEUKOCYTOSIS [None]
  - PSYCHOMOTOR HYPERACTIVITY [None]
  - RENAL FAILURE ACUTE [None]
